FAERS Safety Report 14610029 (Version 1)
Quarter: 2018Q1

REPORT INFORMATION
  Report Type: Spontaneous
  Country: US (occurrence: US)
  Receive Date: 20180307
  Receipt Date: 20180307
  Transmission Date: 20180509
  Serious: No
  Sender: FDA-Public Use
  Company Number: US-MERZ NORTH AMERICA, INC.-18MRZ-00112

PATIENT
  Age: 40 Year
  Sex: Female

DRUGS (1)
  1. XEOMIN [Suspect]
     Active Substance: INCOBOTULINUMTOXINA
     Indication: SKIN COSMETIC PROCEDURE
     Dosage: 8 UNITS TO GLABELLAR AND 12 UNITS TO FOREHEAD
     Dates: start: 20180227, end: 20180227

REACTIONS (2)
  - Brow ptosis [Unknown]
  - Eyelid ptosis [Unknown]
